FAERS Safety Report 10706839 (Version 1)
Quarter: 2015Q1

REPORT INFORMATION
  Report Type: Spontaneous
  Country: DE (occurrence: DE)
  Receive Date: 20150113
  Receipt Date: 20150113
  Transmission Date: 20150721
  Serious: Yes (Other)
  Sender: FDA-Public Use
  Company Number: PHHY2015DE001382

PATIENT
  Age: 74 Year
  Sex: Female

DRUGS (1)
  1. ZOLEDRONATE [Suspect]
     Active Substance: ZOLEDRONIC ACID
     Indication: LUNG NEOPLASM MALIGNANT
     Route: 042

REACTIONS (2)
  - Chronic papillomatous dermatitis [Unknown]
  - Osteonecrosis of jaw [Unknown]
